FAERS Safety Report 7462844-1 (Version None)
Quarter: 2011Q2

REPORT INFORMATION
  Report Type: 
  Country: None (occurrence: None)
  Receive Date: 20110506
  Receipt Date: 20110427
  Transmission Date: 20111010
  Serious: Yes (Death, Hospitalization)
  Sender: FDA-Public Use
  Company Number: US-SANOFI-AVENTIS-2011SA022168

PATIENT
  Age: 76 Year
  Sex: Male

DRUGS (20)
  1. DEXAMETHASONE [Concomitant]
     Dosage: TAKE 2 TABS (4 MG EACH) ORALLY DAILY FOR 3 DAYS AFTER CHEMOTHERAPY
     Route: 048
  2. METOPROLOL SUCCINATE [Concomitant]
     Route: 048
  3. K-TAB [Concomitant]
     Route: 048
  4. JEVTANA KIT [Suspect]
     Indication: PROSTATE CANCER METASTATIC
     Route: 041
     Dates: start: 20110106, end: 20110106
  5. PREDNISONE [Concomitant]
     Route: 048
  6. VICODIN [Concomitant]
     Indication: PAIN
     Dosage: 5/500MG. TAKE 1TO 2 EVERY 4 HOURS AS NEEDED. WATCH ACETAMINOPHEN INTAKE, LIMIT TO 4,000 MG/DAY MAX.
     Route: 048
  7. HYDROCORTISONE SODIUM SUCCINATE [Concomitant]
     Indication: HYPERSENSITIVITY
     Dosage: INJECTION AS NEEDED
  8. ZOLEDRONATE [Concomitant]
     Dosage: 4 MG INJECTION EVERY 4 WEEKS
     Dates: start: 20100416
  9. LORAZEPAM [Concomitant]
     Indication: NAUSEA
     Dosage: 1 TABLET EVERY 4 HOURS AS NEEDED
  10. PROCHLORPERAZINE MALEATE [Concomitant]
     Indication: NAUSEA
     Dosage: 1 TABLET EVERY 6 HOURS AS NEEDED
     Route: 048
  11. TRAMADOL HCL [Concomitant]
     Dosage: 1 TO 2 TABLETS EVERY 4 HOURS ALTERNATE W/VICODIN. DO NOT EXCEED 8 TABLETS PER DAY
     Route: 048
  12. DEXAMETHASONE SODIUM PHOSPHATE [Concomitant]
     Indication: PREMEDICATION
     Dosage: INJECTION
  13. ZAROXOLYN [Concomitant]
     Route: 048
  14. PEGFILGRASTIM [Concomitant]
     Dosage: SYRINGE
  15. COUMADIN [Concomitant]
     Dosage: 2.5MG ON TUESDAYS AND SATURDAYS AND 5MG ALL OTHER DAYS
     Route: 048
  16. LASIX [Concomitant]
     Dosage: TAKE 1 TABLET AS DIRECTED
     Route: 048
  17. SPIRIVA [Concomitant]
     Dosage: TAKE 1 CAPSULE WITH INHALATION DEVICE DAILY BY INHALATION
     Route: 055
  18. METFFORMIN HYDROCHLORIDE [Concomitant]
     Route: 048
  19. OXYCODONE [Concomitant]
     Indication: PAIN
     Dosage: 1 CAPSULE EVERY 3 TO 4 HOURS AS NEEDED
     Route: 048
  20. DIPHENHYDRAMINE HYDROCHLORIDE [Concomitant]
     Indication: HYPERSENSITIVITY
     Dosage: INJECTION AS NEEDED

REACTIONS (18)
  - HYPOTENSION [None]
  - NAUSEA [None]
  - BACK PAIN [None]
  - LUNG INFECTION PSEUDOMONAL [None]
  - CARDIOGENIC SHOCK [None]
  - DYSPNOEA [None]
  - INTERNATIONAL NORMALISED RATIO INCREASED [None]
  - VOMITING [None]
  - NEUTROPENIA [None]
  - BLOOD GLUCOSE INCREASED [None]
  - INSOMNIA [None]
  - URINARY TRACT INFECTION [None]
  - ARTHRALGIA [None]
  - PERICARDITIS [None]
  - PERICARDIAL EFFUSION [None]
  - CARDIAC TAMPONADE [None]
  - RESPIRATORY FAILURE [None]
  - HYPOCALCAEMIA [None]
